FAERS Safety Report 11710642 (Version 2)
Quarter: 2015Q4

REPORT INFORMATION
  Report Type: Spontaneous
  Country: US (occurrence: US)
  Receive Date: 20151104
  Receipt Date: 20151110
  Transmission Date: 20160304
  Serious: No
  Sender: FDA-Public Use
  Company Number: US-ELI_LILLY_AND_COMPANY-US201107000843

PATIENT
  Age: 74 Year
  Sex: Female

DRUGS (1)
  1. FORTEO [Suspect]
     Active Substance: TERIPARATIDE
     Indication: OSTEOPOROSIS
     Dosage: 20 UG, QD
     Route: 065
     Dates: start: 201104

REACTIONS (9)
  - Vomiting [Not Recovered/Not Resolved]
  - Visual impairment [Unknown]
  - Confusional state [Unknown]
  - Electrocardiogram abnormal [Unknown]
  - Thyroid disorder [Unknown]
  - Hearing impaired [Unknown]
  - Liver disorder [Unknown]
  - Feeling abnormal [Not Recovered/Not Resolved]
  - Gastroenteritis viral [Unknown]

NARRATIVE: CASE EVENT DATE: 201106
